FAERS Safety Report 24070984 (Version 1)
Quarter: 2024Q3

REPORT INFORMATION
  Report Type: Report from Study
  Country: US (occurrence: US)
  Receive Date: 20240710
  Receipt Date: 20240710
  Transmission Date: 20241016
  Serious: No
  Sender: ROCHE
  Company Number: US-ROCHE-3038423

PATIENT
  Age: 84 Year
  Sex: Female

DRUGS (12)
  1. ALECENSA [Suspect]
     Active Substance: ALECTINIB HYDROCHLORIDE
     Indication: Bronchial carcinoma
     Dosage: TAKE 2 CAPSULES BID
     Route: 048
  2. ALECENSA [Suspect]
     Active Substance: ALECTINIB HYDROCHLORIDE
     Indication: Metastases to central nervous system
  3. UNSPECIFIED INGREDIENT [Concomitant]
     Active Substance: UNSPECIFIED INGREDIENT
  4. CELECOXIB [Concomitant]
     Active Substance: CELECOXIB
  5. IODINE [Concomitant]
     Active Substance: IODINE
  6. MIRTAZAPINE [Concomitant]
     Active Substance: MIRTAZAPINE
  7. BIOTIN [Concomitant]
     Active Substance: BIOTIN
  8. CALTRATE [Concomitant]
     Active Substance: CALCIUM CARBONATE
  9. COREG [Concomitant]
     Active Substance: CARVEDILOL
  10. LASIX [Concomitant]
     Active Substance: FUROSEMIDE
  11. ERGOCALCIFEROL [Concomitant]
     Active Substance: ERGOCALCIFEROL
  12. XARELTO [Concomitant]
     Active Substance: RIVAROXABAN

REACTIONS (2)
  - Off label use [Unknown]
  - No adverse event [Unknown]
